FAERS Safety Report 25915466 (Version 2)
Quarter: 2025Q4

REPORT INFORMATION
  Report Type: Spontaneous
  Country: CA (occurrence: CA)
  Receive Date: 20251013
  Receipt Date: 20251208
  Transmission Date: 20260117
  Serious: Yes (Other)
  Sender: ASTELLAS
  Company Number: CA-PFIZER INC-PV202500119495

PATIENT
  Age: 56 Year
  Sex: Male

DRUGS (3)
  1. PADCEV [Suspect]
     Active Substance: ENFORTUMAB VEDOTIN-EJFV
     Indication: Product used for unknown indication
     Dosage: UNK?POWDER FOR SOLUTION FOR INFUSION
     Route: 050
     Dates: start: 20250417
  2. KEYTRUDA [Concomitant]
     Active Substance: PEMBROLIZUMAB
     Indication: Product used for unknown indication
     Dosage: UNK UNK, CYCLIC
  3. KEYTRUDA [Concomitant]
     Active Substance: PEMBROLIZUMAB
     Dosage: UNK UNK, CYCLIC
     Route: 050

REACTIONS (2)
  - Second primary malignancy [Unknown]
  - Leukaemia [Unknown]

NARRATIVE: CASE EVENT DATE: 20250807
